FAERS Safety Report 8202585-6 (Version None)
Quarter: 2012Q1

REPORT INFORMATION
  Report Type: 
  Country: None (occurrence: None)
  Receive Date: 20120312
  Receipt Date: 20120302
  Transmission Date: 20120608
  Serious: Yes (Death, Hospitalization, Other)
  Sender: FDA-Public Use
  Company Number: US-ABBOTT-12P-163-0910117-00

PATIENT
  Sex: Female

DRUGS (8)
  1. UNNAMED MEDICATION [Concomitant]
     Indication: BLOOD CHOLESTEROL INCREASED
  2. SYNTHROID [Concomitant]
     Indication: HYPOTHYROIDISM
  3. GLUCOPHAGE [Concomitant]
     Indication: DIABETES MELLITUS
  4. HUMIRA [Suspect]
     Indication: PSORIASIS
     Dates: start: 20081201, end: 20111001
  5. HUMIRA [Suspect]
     Dates: start: 20111101
  6. METFORMIN HCL [Concomitant]
     Indication: DIABETES MELLITUS
  7. DOVENEX [Concomitant]
     Indication: PSORIASIS
     Route: 061
  8. TACLONEX [Concomitant]
     Indication: PSORIASIS
     Route: 061

REACTIONS (6)
  - MUCOSAL DRYNESS [None]
  - PAIN [None]
  - TACHYCARDIA [None]
  - PNEUMONIA [None]
  - ACUTE RESPIRATORY DISTRESS SYNDROME [None]
  - HEPATITIS C ANTIBODY POSITIVE [None]
